FAERS Safety Report 4409860-1 (Version None)
Quarter: 2004Q3

REPORT INFORMATION
  Report Type: 
  Country: None (occurrence: None)
  Receive Date: 20040727
  Receipt Date: 20040727
  Transmission Date: 20050211
  Serious: No
  Sender: FDA-Public Use
  Company Number: None

PATIENT
  Age: 87 Year
  Sex: Female
  Weight: 47.1741 kg

DRUGS (1)
  1. FORTEO [Suspect]
     Indication: OSTEOPOROSIS
     Dosage: 40 MCG  DAILY  SUBCUTANEOUS
     Route: 058
     Dates: start: 20040608, end: 20040705

REACTIONS (1)
  - OEDEMA PERIPHERAL [None]
